FAERS Safety Report 8317168-7 (Version None)
Quarter: 2012Q2

REPORT INFORMATION
  Report Type: 
  Country: None (occurrence: None)
  Receive Date: 20120427
  Receipt Date: 20120413
  Transmission Date: 20120825
  Serious: Yes (Death)
  Sender: FDA-Public Use
  Company Number: DE-UCBSA-055658

PATIENT
  Age: 78 Year
  Sex: Male

DRUGS (3)
  1. LACOSAMIDE [Suspect]
     Indication: STATUS EPILEPTICUS
     Dosage: 50 MG OR 100 MG AS BOLUS OR 50 MG TWICE A DAY
     Route: 042
  2. LACOSAMIDE [Suspect]
     Dosage: 50 MG OR 100 MG AS BOLUS OR 50 MG TWICE A DAY
     Route: 042
  3. LEVETIRACETAM [Concomitant]
     Dosage: 4000 MG

REACTIONS (1)
  - SEPSIS [None]
